FAERS Safety Report 9540725 (Version 1)
Quarter: 2013Q3

REPORT INFORMATION
  Report Type: Spontaneous
  Country: US (occurrence: US)
  Receive Date: 20130920
  Receipt Date: 20130920
  Transmission Date: 20140515
  Serious: Yes (Other)
  Sender: FDA-Public Use
  Company Number: US-PFIZER INC-2013271081

PATIENT
  Sex: Female

DRUGS (2)
  1. LYRICA [Suspect]
     Indication: PAIN
     Dosage: UNK
  2. LYRICA [Suspect]
     Dosage: 150 MG, 2X/DAY

REACTIONS (3)
  - Deep vein thrombosis [Unknown]
  - Oedema peripheral [Unknown]
  - Drug ineffective [Unknown]
